FAERS Safety Report 7461644-6 (Version None)
Quarter: 2011Q2

REPORT INFORMATION
  Report Type: 
  Country: None (occurrence: None)
  Receive Date: 20110427
  Receipt Date: 20110411
  Transmission Date: 20111010
  Serious: Yes (Hospitalization, Other)
  Sender: FDA-Public Use
  Company Number: 2008S1010655

PATIENT
  Age: 76 Year
  Sex: Male
  Weight: 71.6683 kg

DRUGS (3)
  1. ZOLOFT [Concomitant]
  2. BENICAR [Concomitant]
  3. PHOSPHOSODA FLAVOR NOT SPECIFIED [Suspect]
     Indication: COLONOSCOPY
     Dosage: 90 ML;TOTAL;PO
     Route: 048
     Dates: start: 20051113, end: 20051113

REACTIONS (13)
  - RENAL FAILURE CHRONIC [None]
  - DIALYSIS [None]
  - PARKINSONISM [None]
  - ACUTE PRERENAL FAILURE [None]
  - BLOOD POTASSIUM INCREASED [None]
  - NEPHROSCLEROSIS [None]
  - THROMBOCYTOPENIA [None]
  - RENAL TUBULAR NECROSIS [None]
  - BLOOD SODIUM DECREASED [None]
  - ORTHOSTATIC HYPOTENSION [None]
  - DEHYDRATION [None]
  - ELECTROLYTE IMBALANCE [None]
  - ANAEMIA [None]
